FAERS Safety Report 9467407 (Version 1)
Quarter: 2013Q3

REPORT INFORMATION
  Report Type: Spontaneous
  Country: US (occurrence: None)
  Receive Date: 20130819
  Receipt Date: 20130819
  Transmission Date: 20140515
  Serious: Yes (Other)
  Sender: FDA-Public Use
  Company Number: None

PATIENT
  Age: 60 Year
  Sex: Male
  Weight: 90.27 kg

DRUGS (3)
  1. AMOXICILLIN [Suspect]
  2. OLANZAPINE [Concomitant]
  3. ZYPREXA [Concomitant]

REACTIONS (4)
  - Joint swelling [None]
  - Memory impairment [None]
  - Dysarthria [None]
  - Sleep disorder [None]
